FAERS Safety Report 4482110-6 (Version None)
Quarter: 2004Q4

REPORT INFORMATION
  Report Type: 
  Country: None (occurrence: None)
  Receive Date: 20041020
  Receipt Date: 20041004
  Transmission Date: 20050328
  Serious: Yes (Hospitalization, Other)
  Sender: FDA-Public Use
  Company Number: USA040978676

PATIENT
  Age: 79 Year
  Sex: Male
  Weight: 59 kg

DRUGS (7)
  1. CYMBALTA [Suspect]
     Indication: NEUROPATHIC PAIN
     Dosage: 30 MG/1 DAY
     Dates: start: 20040917, end: 20040917
  2. DARVON [Concomitant]
  3. LANOXIN (DIGOXIN STREULI) [Concomitant]
  4. PROVIGIL [Concomitant]
  5. GLUCOSAMINE [Concomitant]
  6. CONDROITINA (CHONDROITIN SULFATE SODIUM) [Concomitant]
  7. TRAZADONE (TRAZODONE) [Concomitant]

REACTIONS (8)
  - ABDOMINAL PAIN UPPER [None]
  - ANXIETY [None]
  - CONFUSIONAL STATE [None]
  - DYSKINESIA [None]
  - MEMORY IMPAIRMENT [None]
  - NAUSEA [None]
  - PYREXIA [None]
  - VOMITING [None]
